FAERS Safety Report 7227425-3 (Version None)
Quarter: 2011Q1

REPORT INFORMATION
  Report Type: 
  Country: None (occurrence: None)
  Receive Date: 20110111
  Receipt Date: 20110111
  Transmission Date: 20110831
  Serious: Yes (Other)
  Sender: FDA-Public Use
  Company Number: None

PATIENT
  Age: 54 Year
  Sex: Female
  Weight: 50.8029 kg

DRUGS (1)
  1. CIPRO [Suspect]
     Indication: URINARY TRACT INFECTION
     Dosage: 500MG 2 X A DAY PO
     Route: 048
     Dates: start: 20101213, end: 20101220

REACTIONS (3)
  - PAIN IN EXTREMITY [None]
  - BACK PAIN [None]
  - ARTHRALGIA [None]
